FAERS Safety Report 8079823-6 (Version None)
Quarter: 2012Q1

REPORT INFORMATION
  Report Type: 
  Country: None (occurrence: None)
  Receive Date: 20120128
  Receipt Date: 20110831
  Transmission Date: 20120608
  Serious: No
  Sender: FDA-Public Use
  Company Number: US-ABBOTT-11P-163-0850645-00

PATIENT
  Age: 31 Year
  Sex: Male

DRUGS (2)
  1. HUMIRA [Suspect]
     Indication: CROHN'S DISEASE
     Dosage: LOADING DOSE
     Dates: start: 20110826
  2. TRILEPTAL [Concomitant]
     Indication: PETIT MAL EPILEPSY

REACTIONS (4)
  - COUGH [None]
  - HEADACHE [None]
  - PAIN [None]
  - RHINORRHOEA [None]
